FAERS Safety Report 24200714 (Version 3)
Quarter: 2024Q4

REPORT INFORMATION
  Report Type: Spontaneous
  Country: US (occurrence: US)
  Receive Date: 20240812
  Receipt Date: 20241119
  Transmission Date: 20250115
  Serious: Yes (Hospitalization, Other)
  Sender: CATALYST PHARMA
  Company Number: US-CATALYST PHARMACEUTICALS-US-CATA-24-00845

PATIENT
  Age: 12 Year
  Sex: Male
  Weight: 63.946 kg

DRUGS (25)
  1. AGAMREE [Suspect]
     Active Substance: VAMOROLONE
     Indication: Duchenne muscular dystrophy
     Dosage: 30 MG ONCE A DAY VIA G-TUBE
     Dates: start: 20240503, end: 20240802
  2. AMITRIPTYLINE [Concomitant]
     Active Substance: AMITRIPTYLINE
     Indication: Product used for unknown indication
     Dosage: 25 MG 1X A DAY
     Route: 048
  3. CALCIUM CARBONATE [Concomitant]
     Active Substance: CALCIUM CARBONATE
     Indication: Product used for unknown indication
     Dosage: 1250 MG (500 MG ELEMENTAL CA) / 5 ML SUSP GTUBE 3X A DAY
     Route: 065
     Dates: start: 20231204
  4. CELEBREX [Concomitant]
     Active Substance: CELECOXIB
     Indication: Pain
     Dosage: 100 MG 2X A DAY PRN
     Route: 065
     Dates: start: 20240607
  5. CYMBALTA [Concomitant]
     Active Substance: DULOXETINE HYDROCHLORIDE
     Indication: Product used for unknown indication
     Dosage: 60 MG EVERY MORNING
     Route: 065
  6. FAMOTIDINE [Concomitant]
     Active Substance: FAMOTIDINE
     Indication: Product used for unknown indication
     Dosage: 40 MG/5 ML DAILY
     Route: 048
     Dates: start: 20240108
  7. OMEPRAZOLE [Concomitant]
     Active Substance: OMEPRAZOLE
     Indication: Product used for unknown indication
     Dosage: 20 ML DAILY
     Route: 065
  8. LISINOPRIL [Concomitant]
     Active Substance: LISINOPRIL
     Indication: Product used for unknown indication
     Dosage: 10 MG DAILY
     Route: 065
  9. RISPERIDONE [Concomitant]
     Active Substance: RISPERIDONE
     Indication: Product used for unknown indication
     Dosage: 0.25 MG AT BEDTIME
     Route: 065
  10. VITAMIN D3 [Concomitant]
     Active Substance: CHOLECALCIFEROL
     Indication: Product used for unknown indication
     Dosage: 5000 INTL UNITS/ML DAILY
     Route: 048
     Dates: start: 20230905
  11. ZOLEDRONIC [Concomitant]
     Active Substance: ZOLEDRONIC ACID
     Indication: Product used for unknown indication
     Dosage: EVERY 6 MONTHS
     Route: 042
  12. PROZAC [Concomitant]
     Active Substance: FLUOXETINE HYDROCHLORIDE
     Indication: Product used for unknown indication
     Dosage: TAKE 2 CAPSULE IN THE MORNING EVERYDAY
     Route: 048
     Dates: start: 20240723
  13. SOLU CORTEF ACT-O-VIAL [Concomitant]
     Indication: Illness
     Dosage: 100 MG PRN
     Route: 030
     Dates: start: 20240805
  14. LEVETIRACETAM [Concomitant]
     Active Substance: LEVETIRACETAM
     Indication: Product used for unknown indication
     Dosage: 100 MG/ML, BID VIA G-TUBE
     Route: 048
     Dates: start: 20240806
  15. METOPROLOL SUCCINATE [Concomitant]
     Active Substance: METOPROLOL SUCCINATE
     Indication: Product used for unknown indication
     Dosage: 12.5 MILLIGRAM, QD
     Route: 048
     Dates: start: 20240503
  16. PREDNISONE [Concomitant]
     Active Substance: PREDNISONE
     Indication: Product used for unknown indication
     Dosage: 20 MG DAILY FROM MONDAY TO FRIDAY VIA G-TUBE
     Route: 048
     Dates: start: 20240806, end: 20240905
  17. PREDNISONE [Concomitant]
     Active Substance: PREDNISONE
     Dosage: TAKE 2 X 50 MG TABLETS AS WELL AS 1 X 20 MG  TABLET TO MAKE 120 MG  ON SATURDAY AND SUNDAY FOR 30 DA
     Route: 048
     Dates: start: 20240806, end: 20240905
  18. ALBUTEROL [Concomitant]
     Active Substance: ALBUTEROL
     Indication: Product used for unknown indication
     Dosage: 2.5 MG/3 ML (0.083 %) BID
     Route: 055
     Dates: start: 20230515
  19. ALBUTEROL [Concomitant]
     Active Substance: ALBUTEROL
     Indication: Respiratory distress
     Dosage: 90 MCG/INH, 2 PUFF Q4H PRN
     Route: 055
     Dates: start: 20230424
  20. CALCITRIOL [Concomitant]
     Active Substance: CALCITRIOL
     Indication: Product used for unknown indication
     Dosage: 1 MCG/ML GTUBE QD
     Route: 048
     Dates: start: 20240306
  21. VALIUM [Concomitant]
     Active Substance: DIAZEPAM
     Indication: Muscle spasms
     Dosage: 2 MG Q12H PRN
     Route: 048
     Dates: start: 20230808
  22. NAYZILAM [Concomitant]
     Active Substance: MIDAZOLAM
     Indication: Product used for unknown indication
     Dosage: 5 MG/INH NASAL SPRAY, 1 SPRAY ONE TIME ONY IN ONE NOSTRIL, IF ADDITIONAL DOSE IS NEEDED, ALTERNATE N
     Route: 045
  23. OMEPRAZOLE\SODIUM BICARBONATE [Concomitant]
     Active Substance: OMEPRAZOLE\SODIUM BICARBONATE
     Indication: Product used for unknown indication
     Dosage: 2MG-84 MG/ML, 20 ML GTUBE QHS
     Route: 048
     Dates: start: 20230808
  24. MIRALAX [Concomitant]
     Active Substance: POLYETHYLENE GLYCOL 3350
     Indication: Product used for unknown indication
     Dosage: 17 G QD
     Route: 048
     Dates: start: 20230510
  25. TIZANIDINE [Concomitant]
     Active Substance: TIZANIDINE
     Indication: Product used for unknown indication
     Dosage: 2 MG Q8H
     Route: 048
     Dates: start: 20230403

REACTIONS (3)
  - Cardiac arrest [Recovering/Resolving]
  - Seizure [Not Recovered/Not Resolved]
  - COVID-19 [Unknown]

NARRATIVE: CASE EVENT DATE: 20240728
